FAERS Safety Report 12487579 (Version 1)
Quarter: 2016Q2

REPORT INFORMATION
  Report Type: Spontaneous
  Country: IR (occurrence: IR)
  Receive Date: 20160622
  Receipt Date: 20160622
  Transmission Date: 20160815
  Serious: Yes (Hospitalization, Other)
  Sender: FDA-Public Use
  Company Number: IR-SCIEGEN PHARMACEUTICALS INC-2016SCILIT00221

PATIENT
  Age: 26 Year
  Sex: Female

DRUGS (1)
  1. LAMOTRIGINE TABLETS [Suspect]
     Active Substance: LAMOTRIGINE
     Indication: BIPOLAR DISORDER
     Dosage: 200 MG, BID
     Route: 065

REACTIONS (27)
  - Headache [Recovering/Resolving]
  - Menorrhagia [Recovered/Resolved]
  - Suicide attempt [Recovering/Resolving]
  - Mental impairment [Recovering/Resolving]
  - Overdose [Recovered/Resolved]
  - Nystagmus [Recovering/Resolving]
  - Hyperhidrosis [Recovering/Resolving]
  - Abdominal pain [Recovering/Resolving]
  - Muscle spasticity [Recovering/Resolving]
  - Tachycardia [Recovering/Resolving]
  - Fatigue [Recovering/Resolving]
  - Somnolence [Recovering/Resolving]
  - Dysarthria [Recovering/Resolving]
  - Disturbance in attention [Recovering/Resolving]
  - Apraxia [Recovering/Resolving]
  - Lethargy [Recovering/Resolving]
  - Dehydration [Recovering/Resolving]
  - Vomiting [Recovering/Resolving]
  - Depressed level of consciousness [Recovering/Resolving]
  - Visual impairment [Recovering/Resolving]
  - Asthenia [Recovering/Resolving]
  - Generalised tonic-clonic seizure [Recovered/Resolved]
  - Dizziness [Recovering/Resolving]
  - Agitation [Recovering/Resolving]
  - Ataxia [Recovering/Resolving]
  - Tachypnoea [Recovering/Resolving]
  - Hypokalaemia [Recovered/Resolved]
